FAERS Safety Report 12977996 (Version 2)
Quarter: 2017Q1

REPORT INFORMATION
  Report Type: Spontaneous
  Country: US (occurrence: US)
  Receive Date: 20161128
  Receipt Date: 20170119
  Transmission Date: 20170428
  Serious: Yes (Hospitalization, Other)
  Sender: FDA-Public Use
  Company Number: US-ASTELLAS-2016US036811

PATIENT
  Age: 67 Year
  Sex: Female

DRUGS (3)
  1. MYRBETRIQ [Suspect]
     Active Substance: MIRABEGRON
     Route: 048
     Dates: start: 201608
  2. MYRBETRIQ [Suspect]
     Active Substance: MIRABEGRON
     Route: 048
  3. MYRBETRIQ [Suspect]
     Active Substance: MIRABEGRON
     Indication: INCONTINENCE
     Route: 048
     Dates: start: 2015, end: 201605

REACTIONS (6)
  - Drug ineffective [Unknown]
  - Upper limb fracture [Recovered/Resolved]
  - Lower limb fracture [Recovering/Resolving]
  - Treatment noncompliance [Unknown]
  - Fall [Unknown]
  - Fall [Recovered/Resolved]

NARRATIVE: CASE EVENT DATE: 201604
